FAERS Safety Report 7887194-0 (Version None)
Quarter: 2011Q4

REPORT INFORMATION
  Report Type: 
  Country: None (occurrence: None)
  Receive Date: 20111102
  Receipt Date: 20110715
  Transmission Date: 20120403
  Serious: No
  Sender: FDA-Public Use
  Company Number: US-AMGEN-USASP2011011199

PATIENT
  Age: 61 Year
  Sex: Female

DRUGS (2)
  1. ENBREL [Suspect]
     Indication: RHEUMATOID ARTHRITIS
     Dosage: 50 MG, QWK
     Dates: start: 20110218
  2. ENBREL [Suspect]
     Dosage: UNK
     Dates: end: 20110617

REACTIONS (2)
  - PRODUCTIVE COUGH [None]
  - CHEST DISCOMFORT [None]
